FAERS Safety Report 9459959 (Version 1)
Quarter: 2013Q3

REPORT INFORMATION
  Report Type: Spontaneous
  Country: US (occurrence: None)
  Receive Date: 20130813
  Receipt Date: 20130813
  Transmission Date: 20140515
  Serious: Yes (Other)
  Sender: FDA-Public Use
  Company Number: None

PATIENT
  Age: 66 Year
  Sex: Female
  Weight: 70.31 kg

DRUGS (10)
  1. TRAMADOL [Suspect]
     Indication: PAIN
     Route: 048
     Dates: start: 20130723, end: 20130723
  2. DICLOFENAC [Concomitant]
     Route: 048
     Dates: start: 20130723, end: 20130723
  3. MISOPROSTOL [Concomitant]
  4. BENICAR HCT [Concomitant]
  5. PANTOPRAZOLE [Concomitant]
  6. RESTASUS [Concomitant]
  7. VITAMIN C [Concomitant]
  8. MULTI [Concomitant]
  9. B COMPLEX [Concomitant]
  10. BABY ASPIRIN [Concomitant]

REACTIONS (12)
  - Drug hypersensitivity [None]
  - Abdominal discomfort [None]
  - Weight decreased [None]
  - Hypophagia [None]
  - Fall [None]
  - Contusion [None]
  - Contusion [None]
  - Haematoma [None]
  - Nausea [None]
  - Vomiting [None]
  - Dysphonia [None]
  - Feeling hot [None]
